FAERS Safety Report 4445511-8 (Version None)
Quarter: 2004Q3

REPORT INFORMATION
  Report Type: 
  Country: None (occurrence: None)
  Receive Date: 20040809
  Receipt Date: 20031218
  Transmission Date: 20050211
  Serious: Yes (Hospitalization, Other)
  Sender: FDA-Public Use
  Company Number: USA031255119

PATIENT
  Age: 76 Year
  Sex: Female
  Weight: 75 kg

DRUGS (3)
  1. EVISTA [Suspect]
     Indication: OSTEOPOROSIS
     Dosage: UNK
     Route: 065
     Dates: end: 20031201
  2. LIPITOR [Concomitant]
  3. TIAZAC [Concomitant]

REACTIONS (5)
  - EXERCISE LACK OF [None]
  - PAIN [None]
  - PULMONARY EMBOLISM [None]
  - THROMBOPHLEBITIS SUPERFICIAL [None]
  - UPPER RESPIRATORY TRACT INFECTION [None]
